FAERS Safety Report 6877954-7 (Version None)
Quarter: 2010Q3

REPORT INFORMATION
  Report Type: 
  Country: None (occurrence: None)
  Receive Date: 20100727
  Receipt Date: 20100719
  Transmission Date: 20110219
  Serious: Yes (Hospitalization)
  Sender: FDA-Public Use
  Company Number: FR-ASTRAZENECA-2010SE33951

PATIENT
  Age: 59 Year
  Sex: Female

DRUGS (2)
  1. ZOMIG [Suspect]
     Route: 048
     Dates: end: 20081201
  2. PROPOFAN [Suspect]
     Route: 048
     Dates: end: 20081201

REACTIONS (2)
  - DRUG ABUSE [None]
  - HEADACHE [None]
